FAERS Safety Report 5328385-2 (Version None)
Quarter: 2007Q2

REPORT INFORMATION
  Report Type: 
  Country: None (occurrence: None)
  Receive Date: 20070514
  Receipt Date: 20070426
  Transmission Date: 20071010
  Serious: Yes (Hospitalization)
  Sender: FDA-Public Use
  Company Number: 2007AL001701

PATIENT
  Age: 62 Year
  Sex: Female

DRUGS (2)
  1. ENULOSE [Suspect]
     Dosage: QD
  2. SENNA [Concomitant]

REACTIONS (8)
  - ANAEMIA [None]
  - BLOOD POTASSIUM DECREASED [None]
  - CLUBBING [None]
  - COUGH [None]
  - DRUG SCREEN POSITIVE [None]
  - LAXATIVE ABUSE [None]
  - RENAL FAILURE CHRONIC [None]
  - WEIGHT DECREASED [None]
